FAERS Safety Report 8364895-1 (Version None)
Quarter: 2012Q2

REPORT INFORMATION
  Report Type: 
  Country: None (occurrence: None)
  Receive Date: 20120516
  Receipt Date: 20120509
  Transmission Date: 20120825
  Serious: Yes (Other)
  Sender: FDA-Public Use
  Company Number: DE-ROCHE-1068622

PATIENT
  Age: 73 Year
  Sex: Female

DRUGS (1)
  1. XELODA [Suspect]
     Indication: COLON CANCER
     Dates: end: 20120102

REACTIONS (3)
  - IMPAIRED HEALING [None]
  - MECHANICAL ILEUS [None]
  - PERITONITIS [None]
